FAERS Safety Report 6664044-1 (Version None)
Quarter: 2010Q2

REPORT INFORMATION
  Report Type: 
  Country: None (occurrence: None)
  Receive Date: 20100401
  Receipt Date: 20100325
  Transmission Date: 20101027
  Serious: Yes (Other)
  Sender: FDA-Public Use
  Company Number: A0852015A

PATIENT
  Age: 24 Year
  Sex: Female

DRUGS (6)
  1. SUMATRIPTAN SUCCINATE [Suspect]
     Indication: HEADACHE
     Route: 042
     Dates: start: 20100227
  2. MORPHINE [Concomitant]
  3. ANTI-NAUSEA DRUGS [Concomitant]
  4. ANTIEMETIC [Concomitant]
     Route: 042
  5. OXYCONTIN [Concomitant]
  6. TYLENOL-500 [Concomitant]

REACTIONS (15)
  - AMNESIA [None]
  - DISORIENTATION [None]
  - DYSPNOEA [None]
  - EXCORIATION [None]
  - FALL [None]
  - HEADACHE [None]
  - INCORRECT ROUTE OF DRUG ADMINISTRATION [None]
  - LOSS OF CONSCIOUSNESS [None]
  - MEMORY IMPAIRMENT [None]
  - MUSCULOSKELETAL STIFFNESS [None]
  - NECK PAIN [None]
  - OEDEMA PERIPHERAL [None]
  - PAIN IN EXTREMITY [None]
  - PROCEDURAL PAIN [None]
  - SCREAMING [None]
